FAERS Safety Report 8684359 (Version 10)
Quarter: 2013Q4

REPORT INFORMATION
  Report Type: Report from Study
  Country: DE (occurrence: DE)
  Receive Date: 20120726
  Receipt Date: 20131107
  Transmission Date: 20140711
  Serious: Yes (Hospitalization)
  Sender: FDA-Public Use
  Company Number: DE-ROCHE-1086462

PATIENT
  Age: 58 Year
  Sex: Female
  Weight: 51 kg

DRUGS (8)
  1. BEVACIZUMAB [Suspect]
     Indication: OVARIAN CANCER
     Dosage: LAST DOSE PRIOR TO SAE : 22/AUG/2012, DOSE INTERRUPTED ON 24/JULY/2012
     Route: 042
     Dates: start: 20120522, end: 20130902
  2. BEVACIZUMAB [Suspect]
     Dosage: LAST DOSE PRIOR TO SAE TAKEN ON 06/DEC/2012
     Route: 042
     Dates: start: 20120522
  3. BEVACIZUMAB [Suspect]
     Dosage: LAST DOSE PRIOR TO SAE TAKEN ON 28/DEC/2012, ?LAST DOSE PRIOR TO FIFTH EPISODE OF THE EVENT GENERAL
     Route: 042
     Dates: start: 20120522
  4. BEVACIZUMAB [Suspect]
     Dosage: LAST DOSE PRIOR TO FIFTH EPISODE OF THE EVENT GENERAL BAD CONDITION: 12/AUG/2013
     Route: 042
     Dates: start: 20120522
  5. CARBOPLATIN [Suspect]
     Indication: OVARIAN CANCER
     Dosage: LAST DOSE PRIOR TO SAE : 22/AUG/2012
     Route: 042
     Dates: start: 20120430, end: 20130902
  6. CARBOPLATIN [Suspect]
     Dosage: LAST DOSE PRIOR TO FIFTH EPISODE OF THE EVENT GENERAL BAD CONDITION: 22/AUG/2012
     Route: 042
     Dates: start: 20120430
  7. PACLITAXEL [Suspect]
     Indication: OVARIAN CANCER
     Dosage: LAST DOSE PRIOR TO SAE : 22/AUG/2012
     Route: 042
     Dates: start: 20120430, end: 20130902
  8. PACLITAXEL [Suspect]
     Dosage: LAST DOSE PRIOR TO FIFTH EPISODE OF THE EVENT GENERAL BAD CONDITION
     Route: 042
     Dates: start: 20120430

REACTIONS (4)
  - General physical health deterioration [Recovered/Resolved]
  - General physical health deterioration [Recovered/Resolved]
  - General physical health deterioration [Recovered/Resolved]
  - Device related infection [Recovered/Resolved]
